FAERS Safety Report 18300647 (Version 1)
Quarter: 2020Q3

REPORT INFORMATION
  Report Type: Other
  Country: CN (occurrence: CN)
  Receive Date: 20200923
  Receipt Date: 20200923
  Transmission Date: 20201103
  Serious: Yes (Other)
  Sender: FDA-Public Use
  Company Number: CN-ROCHE-2681990

PATIENT

DRUGS (6)
  1. ACTILYSE [Suspect]
     Active Substance: ALTEPLASE
     Indication: CEREBRAL INFARCTION
     Dosage: 1 EVERY 1 TOTAL?AT THE SAME TIME, 0.9 MG/KG ALTEPLASE WAS ADMINISTERED. FREQUENCY: 1.
     Route: 042
  2. EDARAVONE [Concomitant]
     Active Substance: EDARAVONE
     Indication: CEREBRAL INFARCTION
     Route: 042
  3. CLOPIDOGREL [Concomitant]
     Active Substance: CLOPIDOGREL BISULFATE
     Indication: PLATELET AGGREGATION TEST
     Route: 065
  4. ACTILYSE [Suspect]
     Active Substance: ALTEPLASE
     Dosage: REMAINING 90% ALTEPLASE AND 100 ML OF 0.9% SODIUM ?CHLORIDE INJECTION WERE ADMINISTERED AS AN INTRA
     Route: 042
  5. ASPIRIN. [Concomitant]
     Active Substance: ASPIRIN
     Indication: PLATELET AGGREGATION TEST
     Route: 065
  6. SODIUM CHLORIDE. [Concomitant]
     Active Substance: SODIUM CHLORIDE
     Indication: VEHICLE SOLUTION USE
     Route: 042

REACTIONS (1)
  - Drug ineffective [Unknown]
